FAERS Safety Report 23448223 (Version 1)
Quarter: 2024Q1

REPORT INFORMATION
  Report Type: Spontaneous
  Country: US (occurrence: US)
  Receive Date: 20240126
  Receipt Date: 20240126
  Transmission Date: 20240410
  Serious: No
  Sender: FDA-Public Use
  Company Number: US-ABBVIE-5603049

PATIENT
  Age: 48 Year
  Sex: Female

DRUGS (1)
  1. BOTOX [Suspect]
     Active Substance: ONABOTULINUMTOXINA
     Indication: Injection site reaction
     Dosage: TIME INTERVAL: AS NECESSARY
     Route: 030
     Dates: start: 2022, end: 2022

REACTIONS (3)
  - Fibromyalgia [Unknown]
  - Eczema [Unknown]
  - Injection site reaction [Not Recovered/Not Resolved]

NARRATIVE: CASE EVENT DATE: 20240117
